FAERS Safety Report 4404158-X (Version None)
Quarter: 2004Q3

REPORT INFORMATION
  Report Type: 
  Country: None (occurrence: None)
  Receive Date: 20040721
  Receipt Date: 20040721
  Transmission Date: 20050211
  Serious: Yes (Other)
  Sender: FDA-Public Use
  Company Number: None

PATIENT
  Sex: Female
  Weight: 50.8029 kg

DRUGS (7)
  1. MOBIC [Suspect]
     Indication: BACK PAIN
     Dosage: 1 TABLET 1X/DAY ORAL
     Route: 048
     Dates: start: 20031001, end: 20040617
  2. MIRAPEX [Concomitant]
  3. AMANTADINE HCL [Concomitant]
  4. CELEXA [Concomitant]
  5. ORTHO-NOVUM [Concomitant]
  6. ASPIRIN [Concomitant]
  7. MULTI-VITAMIN [Concomitant]

REACTIONS (2)
  - PHARMACEUTICAL PRODUCT COMPLAINT [None]
  - SCHAMBERG'S DISEASE [None]
